APPROVED DRUG PRODUCT: TOBRASONE
Active Ingredient: FLUOROMETHOLONE ACETATE; TOBRAMYCIN
Strength: 0.1%;0.3%
Dosage Form/Route: SUSPENSION/DROPS;OPHTHALMIC
Application: N050628 | Product #001
Applicant: HARROW EYE LLC
Approved: Jul 21, 1989 | RLD: No | RS: No | Type: DISCN